FAERS Safety Report 15233012 (Version 10)
Quarter: 2021Q4

REPORT INFORMATION
  Report Type: Spontaneous
  Country: US (occurrence: US)
  Receive Date: 20180802
  Receipt Date: 20211012
  Transmission Date: 20220303
  Serious: Yes (Disabling, Other)
  Sender: FDA-Public Use
  Company Number: US-ENDO PHARMACEUTICALS INC-2018-040414

PATIENT
  Age: 70 Year
  Sex: Male
  Weight: 72.56 kg

DRUGS (18)
  1. XIAFLEX [Suspect]
     Active Substance: COLLAGENASE CLOSTRIDIUM HISTOLYTICUM
     Indication: Dupuytren^s contracture
     Dosage: UNK UNKNOWN, UNKNOWN (1ST INJECTION)
     Route: 065
     Dates: start: 20160726
  2. XIAFLEX [Suspect]
     Active Substance: COLLAGENASE CLOSTRIDIUM HISTOLYTICUM
     Dosage: UNK UNKNOWN, UNKNOWN (2ND INJECTION)
     Route: 065
     Dates: start: 20170116
  3. XIAFLEX [Suspect]
     Active Substance: COLLAGENASE CLOSTRIDIUM HISTOLYTICUM
     Dosage: UNK UNKNOWN, UNKNOWN (3RD INJECTION)
     Route: 065
     Dates: start: 20171023, end: 20171023
  4. PROAIR HFA [Concomitant]
     Active Substance: ALBUTEROL SULFATE
     Indication: Wheezing
     Dosage: 2 DF, EVERY 4-6 HOURS PRN
     Route: 048
  5. DESOWEN [Concomitant]
     Active Substance: DESONIDE
     Indication: Seborrhoeic dermatitis
     Dosage: 1 DF, BID
     Route: 061
  6. PROSCAR [Concomitant]
     Active Substance: FINASTERIDE
     Indication: Benign prostatic hyperplasia
     Dosage: 1 DF, DAILY
     Route: 048
  7. PROSCAR [Concomitant]
     Active Substance: FINASTERIDE
     Indication: Lower urinary tract symptoms
  8. NITROSTAT [Concomitant]
     Active Substance: NITROGLYCERIN
     Indication: Chest pain
     Dosage: 0.4 MG, PRN (1 TAB UNDER THE TONGUE EVERY 5 MINUTES AS NEEDED)
     Route: 060
  9. NITROSTAT [Concomitant]
     Active Substance: NITROGLYCERIN
     Indication: Type IIa hyperlipidaemia
  10. PRILOSEC [Concomitant]
     Active Substance: OMEPRAZOLE MAGNESIUM
     Indication: Barrett^s oesophagus
     Dosage: 20 MG, DAILY
     Route: 048
  11. PRILOSEC [Concomitant]
     Active Substance: OMEPRAZOLE MAGNESIUM
     Indication: Dyspepsia
  12. PRAVACHOL [Concomitant]
     Active Substance: PRAVASTATIN SODIUM
     Indication: Type IIa hyperlipidaemia
     Dosage: 80 MG, UNKNOWN; EVERY OTHER DAY
     Route: 048
  13. AMBIEN [Concomitant]
     Active Substance: ZOLPIDEM TARTRATE
     Indication: Insomnia
     Dosage: 10 MG, PRN (QHS)
     Route: 048
  14. SPIRIVA [Concomitant]
     Active Substance: TIOTROPIUM BROMIDE MONOHYDRATE
     Indication: Emphysema
     Dosage: 1 DF, DAILY (INHALE 1 CAP BY MOUTH DAILY)
     Route: 048
  15. FINASTERIDE [Concomitant]
     Active Substance: FINASTERIDE
     Indication: Benign prostatic hyperplasia
     Dosage: 5 UNK, UNKNOWN
     Route: 065
  16. VITAMINS [Concomitant]
     Active Substance: VITAMINS
     Indication: Product used for unknown indication
     Dosage: UNK UNKNOWN, UNKNOWN
     Route: 065
  17. ASPIRIN [Concomitant]
     Active Substance: ASPIRIN
     Indication: Product used for unknown indication
     Dosage: 81 MG, DAILY
     Route: 048
  18. ZOLOFT [Concomitant]
     Active Substance: SERTRALINE HYDROCHLORIDE
     Indication: Stress
     Dosage: UNK UNKNOWN, UNKNOWN
     Route: 065

REACTIONS (47)
  - Brain injury [Unknown]
  - Cardiomyopathy [Unknown]
  - Temporomandibular joint syndrome [Unknown]
  - Cartilage injury [Unknown]
  - Suicidal ideation [Unknown]
  - Clostridium difficile colitis [Unknown]
  - Drug hypersensitivity [Unknown]
  - Chest pain [Recovering/Resolving]
  - Seizure [Unknown]
  - Syncope [Recovered/Resolved]
  - Product administered at inappropriate site [Unknown]
  - Spondylitis [Unknown]
  - Heart rate increased [Unknown]
  - Blood pressure decreased [Unknown]
  - Post-traumatic stress disorder [Unknown]
  - Depression [Unknown]
  - Memory impairment [Unknown]
  - Feeling abnormal [Unknown]
  - Personal relationship issue [Unknown]
  - Product after taste [Unknown]
  - Urinary incontinence [Unknown]
  - Headache [Unknown]
  - Dyspnoea [Unknown]
  - Hyperhidrosis [Unknown]
  - Eye movement disorder [Unknown]
  - Balance disorder [Recovered/Resolved]
  - Anxiety [Unknown]
  - Panic attack [Unknown]
  - Claustrophobia [Unknown]
  - Palpitations [Unknown]
  - Fatigue [Unknown]
  - Muscle spasms [Unknown]
  - Liver function test increased [Unknown]
  - Neck pain [Unknown]
  - Salivary hypersecretion [Unknown]
  - Asthenia [Unknown]
  - Blood lactate dehydrogenase increased [Unknown]
  - Urine analysis abnormal [Unknown]
  - Peripheral coldness [Unknown]
  - Nausea [Recovered/Resolved]
  - Vomiting [Recovered/Resolved]
  - Fear of injection [Unknown]
  - Dizziness [Recovered/Resolved]
  - Tinnitus [Unknown]
  - Drug ineffective [Unknown]
  - Dupuytren^s contracture [Not Recovered/Not Resolved]
  - Disease recurrence [Not Recovered/Not Resolved]

NARRATIVE: CASE EVENT DATE: 20170101
